FAERS Safety Report 5371295-5 (Version None)
Quarter: 2007Q2

REPORT INFORMATION
  Report Type: 
  Country: None (occurrence: None)
  Receive Date: 20070615
  Receipt Date: 20061012
  Transmission Date: 20071010
  Serious: Yes (Other)
  Sender: FDA-Public Use
  Company Number: 200618532US

PATIENT
  Age: 80 Year
  Sex: Male

DRUGS (2)
  1. LANTUS [Suspect]
  2. LANTUS [Suspect]
     Dosage: 7U
     Dates: start: 20061001

REACTIONS (3)
  - ASTHENIA [None]
  - HYPERGLYCAEMIA [None]
  - TREMOR [None]
